FAERS Safety Report 7116745-9 (Version None)
Quarter: 2010Q4

REPORT INFORMATION
  Report Type: 
  Country: None (occurrence: None)
  Receive Date: 20101122
  Receipt Date: 20101111
  Transmission Date: 20110411
  Serious: Yes (Life-Threatening)
  Sender: FDA-Public Use
  Company Number: NL-GENZYME-CLOF-1001301

PATIENT
  Sex: Male
  Weight: 120 kg

DRUGS (7)
  1. EVOLTRA [Suspect]
     Indication: PRODUCT USED FOR UNKNOWN INDICATION
     Dosage: 30 MG, QD
     Route: 042
     Dates: start: 20101014, end: 20101019
  2. CYTARABINE [Suspect]
     Indication: PRODUCT USED FOR UNKNOWN INDICATION
     Dosage: 400 MG, QD
     Route: 042
     Dates: start: 20101015, end: 20101021
  3. IDARUBICIN HCL [Suspect]
     Indication: PRODUCT USED FOR UNKNOWN INDICATION
     Dosage: 24 MG, QD
     Route: 042
     Dates: start: 20101015, end: 20101017
  4. MEROPENEM [Concomitant]
     Indication: PYREXIA
     Dosage: 3000 OTHER, UNK
     Route: 042
     Dates: start: 20101020
  5. CIPROFLOXACIN [Concomitant]
     Indication: PYREXIA
     Dosage: 800 OTHER, UNK
     Route: 042
     Dates: start: 20101028
  6. AMPHOTERICIN B [Concomitant]
     Indication: PYREXIA
     Dosage: 100 OTHER, UNK
     Route: 042
     Dates: start: 20101024
  7. FUROSEMID [Concomitant]
     Indication: WEIGHT INCREASED
     Dosage: 3000 MG, UNK
     Dates: start: 20101015

REACTIONS (8)
  - ARRHYTHMIA [None]
  - ATRIAL FIBRILLATION [None]
  - CAPILLARY LEAK SYNDROME [None]
  - ENTEROCOCCAL SEPSIS [None]
  - FLUID OVERLOAD [None]
  - HAEMODYNAMIC INSTABILITY [None]
  - SEPSIS [None]
  - SEPTIC SHOCK [None]
